FAERS Safety Report 9861907 (Version 1)
Quarter: 2014Q1

REPORT INFORMATION
  Report Type: Spontaneous
  Country: CL (occurrence: CL)
  Receive Date: 20140203
  Receipt Date: 20140203
  Transmission Date: 20141002
  Serious: Yes (Hospitalization)
  Sender: FDA-Public Use
  Company Number: CL-JNJFOC-20140118472

PATIENT
  Age: 76 Year
  Sex: Female

DRUGS (3)
  1. XARELTO [Suspect]
     Indication: EMBOLISM VENOUS
     Route: 048
     Dates: start: 201308, end: 20140120
  2. XARELTO [Suspect]
     Indication: DEEP VEIN THROMBOSIS
     Route: 048
     Dates: start: 201308, end: 20140120
  3. PARACETAMOL [Concomitant]
     Route: 048

REACTIONS (6)
  - Ileus [Unknown]
  - Gastrointestinal oedema [Unknown]
  - Intestinal obstruction [Unknown]
  - Bile duct obstruction [Unknown]
  - Oedema peripheral [Unknown]
  - Hypoalbuminaemia [Unknown]
